FAERS Safety Report 5007790-8 (Version None)
Quarter: 2006Q2

REPORT INFORMATION
  Report Type: 
  Country: None (occurrence: None)
  Receive Date: 20060522
  Receipt Date: 20060511
  Transmission Date: 20061013
  Serious: Yes (Other)
  Sender: FDA-Public Use
  Company Number: JP-JPN-A200601524

PATIENT
  Sex: Female

DRUGS (1)
  1. VALTREX [Suspect]
     Indication: ANTIVIRAL PROPHYLAXIS
     Dosage: 500MG PER DAY
     Route: 048

REACTIONS (2)
  - DRUG EXPOSURE DURING PREGNANCY [None]
  - INTRA-UTERINE DEATH [None]
